FAERS Safety Report 6569630-5 (Version None)
Quarter: 2010Q1

REPORT INFORMATION
  Report Type: 
  Country: None (occurrence: None)
  Receive Date: 20100203
  Receipt Date: 20100203
  Transmission Date: 20100710
  Serious: Yes (Other)
  Sender: FDA-Public Use
  Company Number: None

PATIENT
  Sex: Female
  Weight: 68.0396 kg

DRUGS (1)
  1. TOPAMAX [Suspect]
     Indication: MIGRAINE PROPHYLAXIS
     Dosage: 75 MGM DAILY PO SPRING OF 2009 FOR 2 MONTHS
     Route: 048
     Dates: start: 20090101

REACTIONS (2)
  - BLINDNESS TRANSIENT [None]
  - VENTRICULAR EXTRASYSTOLES [None]
